FAERS Safety Report 8958664 (Version 1)
Quarter: 2012Q4

REPORT INFORMATION
  Report Type: Spontaneous
  Country: GB (occurrence: None)
  Receive Date: 20121128
  Receipt Date: 20121128
  Transmission Date: 20130627
  Serious: Yes (Hospitalization)
  Sender: FDA-Public Use
  Company Number: AUR-APL-2012-04973

PATIENT
  Age: 87 Year

DRUGS (1)
  1. TERBINAFINE [Suspect]
     Indication: FUNGAL INFECTION OF NAIL
     Route: 048
     Dates: start: 201207, end: 20121031

REACTIONS (3)
  - Cholestasis [None]
  - Bile duct stenosis [None]
  - Liver function test abnormal [None]
